FAERS Safety Report 6252392-9 (Version None)
Quarter: 2009Q2

REPORT INFORMATION
  Report Type: 
  Country: None (occurrence: None)
  Receive Date: 20090629
  Receipt Date: 20090629
  Transmission Date: 20091009
  Serious: Yes (Other)
  Sender: FDA-Public Use
  Company Number: None

PATIENT
  Age: 70 Year
  Sex: Female
  Weight: 68.95 kg

DRUGS (1)
  1. ZOMETA [Suspect]
     Indication: RESORPTION BONE INCREASED
     Dosage: 3-3 Q6HRS IV
     Route: 042
     Dates: start: 20080806

REACTIONS (1)
  - CREATININE RENAL CLEARANCE DECREASED [None]
